FAERS Safety Report 6999597-7 (Version None)
Quarter: 2010Q3

REPORT INFORMATION
  Report Type: 
  Country: None (occurrence: None)
  Receive Date: 20100920
  Receipt Date: 20100311
  Transmission Date: 20110219
  Serious: No
  Sender: FDA-Public Use
  Company Number: US-ASTRAZENECA-2010SE10623

PATIENT
  Age: 93 Year
  Sex: Female
  Weight: 49.9 kg

DRUGS (4)
  1. SEROQUEL [Suspect]
     Indication: INSOMNIA
     Route: 048
     Dates: start: 20090801, end: 20091001
  2. SEROQUEL [Suspect]
     Route: 048
     Dates: start: 20100202
  3. DIGOXIN [Concomitant]
     Indication: CARDIAC DISORDER
     Route: 065
  4. METOPROLOL TARTRATE [Concomitant]
     Indication: BLOOD PRESSURE
     Route: 065

REACTIONS (2)
  - SOMNOLENCE [None]
  - WRONG TECHNIQUE IN DRUG USAGE PROCESS [None]
